FAERS Safety Report 5867133-4 (Version None)
Quarter: 2008Q3

REPORT INFORMATION
  Report Type: 
  Country: None (occurrence: None)
  Receive Date: 20080902
  Receipt Date: 20080827
  Transmission Date: 20090109
  Serious: Yes (Hospitalization)
  Sender: FDA-Public Use
  Company Number: JP-EISAI MEDICAL RESEARCH-E2090-00528-CLI-JP

PATIENT
  Sex: Male
  Weight: 52 kg

DRUGS (12)
  1. ZONISAMIDE [Suspect]
     Indication: PARKINSON'S DISEASE
     Route: 048
     Dates: start: 20040302, end: 20080825
  2. ZONISAMIDE [Suspect]
     Route: 048
     Dates: start: 20080826
  3. CARBIDOPA + LEVODOPA [Concomitant]
  4. DOMIN [Concomitant]
  5. LENDORMIN [Concomitant]
  6. TETRAMIDE [Concomitant]
  7. PURSENNID [Concomitant]
  8. TELEMINSOFT [Concomitant]
  9. MYCOSPOR [Concomitant]
  10. LACTEC [Concomitant]
  11. VITAMEDIN [Concomitant]
  12. SOLITA-T NO3 [Concomitant]

REACTIONS (1)
  - DYSKINESIA [None]
